FAERS Safety Report 18642182 (Version 1)
Quarter: 2020Q4

REPORT INFORMATION
  Report Type: Spontaneous
  Country: US (occurrence: US)
  Receive Date: 20201221
  Receipt Date: 20201221
  Transmission Date: 20210114
  Serious: No
  Sender: FDA-Public Use
  Company Number: US-TEVA-2020-US-1812127

PATIENT

DRUGS (2)
  1. FREMANEZUMAB [Suspect]
     Active Substance: FREMANEZUMAB
  2. FREMANEZUMAB [Suspect]
     Active Substance: FREMANEZUMAB
     Route: 065

REACTIONS (1)
  - Therapeutic product effect variable [Unknown]
